FAERS Safety Report 4498833-9 (Version None)
Quarter: 2004Q4

REPORT INFORMATION
  Report Type: 
  Country: None (occurrence: None)
  Receive Date: 20041108
  Receipt Date: 20041022
  Transmission Date: 20050328
  Serious: Yes (Life-Threatening, Hospitalization)
  Sender: FDA-Public Use
  Company Number: 2001-DE-Y0147

PATIENT
  Age: 73 Year
  Sex: Male

DRUGS (2)
  1. TAMSULOSIN(NR) [Suspect]
     Indication: BENIGN PROSTATIC HYPERPLASIA
     Dosage: 0.4 MG (1, KA O.D.) PO
     Route: 048
  2. DIGOXIN [Concomitant]

REACTIONS (9)
  - APHAGIA [None]
  - CEREBRAL VENTRICLE DILATATION [None]
  - HAEMATOMA [None]
  - INFLAMMATION [None]
  - LARYNGOSCOPY ABNORMAL [None]
  - OESOPHAGEAL STENOSIS [None]
  - OESOPHAGEAL ULCER [None]
  - PHARYNGEAL OEDEMA [None]
  - PROCEDURAL COMPLICATION [None]
